FAERS Safety Report 5950895-5 (Version None)
Quarter: 2008Q4

REPORT INFORMATION
  Report Type: 
  Country: None (occurrence: None)
  Receive Date: 20081110
  Receipt Date: 20081029
  Transmission Date: 20090506
  Serious: Yes (Death, Hospitalization, Other)
  Sender: FDA-Public Use
  Company Number: 53811

PATIENT
  Age: 48 Year
  Sex: Male

DRUGS (1)
  1. METHYLPREDNISOLONE [Suspect]
     Indication: ENDOCARDITIS
     Dosage: 0.5G IV/DAY FOR 3 DAYS
     Route: 042

REACTIONS (6)
  - ARTERIAL RUPTURE [None]
  - CARDIAC ARREST [None]
  - HAEMORRHAGIC ASCITES [None]
  - INFECTIVE ANEURYSM [None]
  - SHOCK [None]
  - SPLENIC ARTERY ANEURYSM [None]
